FAERS Safety Report 14492058 (Version 2)
Quarter: 2018Q1

REPORT INFORMATION
  Report Type: Report from Study
  Country: US (occurrence: US)
  Receive Date: 20180206
  Receipt Date: 20180214
  Transmission Date: 20180509
  Serious: Yes (Other)
  Sender: FDA-Public Use
  Company Number: US-JAZZ-2018-US-001681

PATIENT
  Age: 32 Year
  Sex: Male

DRUGS (13)
  1. OMEPRAZOLE. [Concomitant]
     Active Substance: OMEPRAZOLE
  2. HUMAN CHORIONIC GONADOTROPIN [Concomitant]
     Active Substance: GONADOTROPHIN, CHORIONIC
  3. ANASTROZOLE. [Concomitant]
     Active Substance: ANASTROZOLE
     Indication: PRODUCT USED FOR UNKNOWN INDICATION
  4. XYREM [Suspect]
     Active Substance: SODIUM OXYBATE
     Indication: HYPERSOMNIA
     Dosage: 2.25 G, BID
     Route: 048
     Dates: start: 20180119
  5. NUVIGIL [Suspect]
     Active Substance: ARMODAFINIL
     Indication: PRODUCT USED FOR UNKNOWN INDICATION
     Dosage: 100 MG
  6. DULOXETINE HCL [Concomitant]
     Active Substance: DULOXETINE HYDROCHLORIDE
  7. ARMODAFINIL. [Concomitant]
     Active Substance: ARMODAFINIL
  8. SILDENAFIL. [Concomitant]
     Active Substance: SILDENAFIL
  9. CYMBALTA [Concomitant]
     Active Substance: DULOXETINE HYDROCHLORIDE
  10. XYREM [Suspect]
     Active Substance: SODIUM OXYBATE
     Dosage: 3 G, BID
     Route: 048
     Dates: start: 201801
  11. ARIMIDEX [Concomitant]
     Active Substance: ANASTROZOLE
  12. PREGNYL [Concomitant]
     Active Substance: CHORIOGONADOTROPIN ALFA
  13. TESTOSTERONE CYPIONATE. [Concomitant]
     Active Substance: TESTOSTERONE CYPIONATE

REACTIONS (11)
  - Poor quality sleep [Unknown]
  - Fatigue [Recovering/Resolving]
  - Feeling hot [Unknown]
  - Hypoaesthesia [Unknown]
  - Pre-existing condition improved [Unknown]
  - Contusion [Unknown]
  - Feeling abnormal [Unknown]
  - Somnolence [Recovered/Resolved]
  - Pain in extremity [Unknown]
  - Therapeutic response unexpected [Unknown]
  - Ulcer [Unknown]

NARRATIVE: CASE EVENT DATE: 201801
